FAERS Safety Report 25121350 (Version 2)
Quarter: 2025Q2

REPORT INFORMATION
  Report Type: Spontaneous
  Country: US (occurrence: US)
  Receive Date: 20250326
  Receipt Date: 20250402
  Transmission Date: 20250716
  Serious: Yes (Disabling)
  Sender: DR REDDYS
  Company Number: US-DRL-USA-USA/2025/03/003872

PATIENT
  Age: 58 Year
  Sex: Male
  Weight: 63.502 kg

DRUGS (1)
  1. NICOTINE [Suspect]
     Active Substance: NICOTINE
     Indication: Smoking cessation therapy
     Route: 062
     Dates: start: 20180731, end: 20250309

REACTIONS (10)
  - Sitting disability [Not Recovered/Not Resolved]
  - Dyspnoea [Not Recovered/Not Resolved]
  - Sleep disorder [Not Recovered/Not Resolved]
  - Loss of personal independence in daily activities [Not Recovered/Not Resolved]
  - Panic attack [Not Recovered/Not Resolved]
  - Expired product administered [Unknown]
  - Nicotine dependence [Not Recovered/Not Resolved]
  - Product use issue [Unknown]
  - Withdrawal syndrome [Not Recovered/Not Resolved]
  - Chest discomfort [Not Recovered/Not Resolved]

NARRATIVE: CASE EVENT DATE: 20250308
